FAERS Safety Report 5002245-9 (Version None)
Quarter: 2006Q2

REPORT INFORMATION
  Report Type: 
  Country: None (occurrence: None)
  Receive Date: 20060508
  Receipt Date: 20060425
  Transmission Date: 20061013
  Serious: Yes (Hospitalization, Other)
  Sender: FDA-Public Use
  Company Number: THYM-10894

PATIENT
  Age: 64 Year
  Sex: Male
  Weight: 97 kg

DRUGS (10)
  1. THYMOGLOBULIN [Suspect]
     Indication: RENAL TRANSPLANT
     Dosage: 1.25 MG/KG ONCE IV
     Route: 042
     Dates: start: 20060222, end: 20060222
  2. CELLCEPT [Concomitant]
  3. RITALIN [Concomitant]
  4. ZOLOFT [Concomitant]
  5. NEURONTIN [Concomitant]
  6. SOLU-MEDROL [Concomitant]
  7. VANCOMYCIN [Concomitant]
  8. MORPHINE [Concomitant]
  9. DIAZEPAM [Concomitant]
  10. RISPERDAL [Concomitant]

REACTIONS (4)
  - CYTOKINE RELEASE SYNDROME [None]
  - HYPERTENSION [None]
  - HYPOTENSION [None]
  - PULMONARY OEDEMA [None]
